FAERS Safety Report 5126275-1 (Version None)
Quarter: 2006Q3

REPORT INFORMATION
  Report Type: 
  Country: None (occurrence: None)
  Receive Date: 20060825
  Receipt Date: 20060606
  Transmission Date: 20061208
  Serious: Yes (Other)
  Sender: FDA-Public Use
  Company Number: 2006-02291

PATIENT

DRUGS (1)
  1. INFED [Suspect]
     Indication: ANAEMIA

REACTIONS (3)
  - ANAPHYLACTIC REACTION [None]
  - CARDIAC DISORDER [None]
  - RESPIRATORY DISTRESS [None]
